FAERS Safety Report 22044202 (Version 1)
Quarter: 2023Q1

REPORT INFORMATION
  Report Type: Spontaneous
  Country: FR (occurrence: FR)
  Receive Date: 20230228
  Receipt Date: 20230228
  Transmission Date: 20230417
  Serious: Yes (Hospitalization)
  Sender: FDA-Public Use
  Company Number: None

PATIENT
  Age: 27 Year
  Sex: Female
  Weight: 54 kg

DRUGS (4)
  1. NAPROXEN SODIUM [Suspect]
     Active Substance: NAPROXEN SODIUM
     Indication: Tooth abscess
     Dosage: 1100 MILLIGRAM DAILY; 1-0-1  , NAPROXENE SODIQUE
     Dates: start: 20230120
  2. AUGMENTIN [Concomitant]
     Active Substance: AMOXICILLIN\CLAVULANATE POTASSIUM
     Indication: Tooth abscess
     Dosage: 3 GRAM DAILY; 1-1-1  , 1 G/125 MG ADULTS, POWDER FOR ORAL SUSPENSION IN SACHET-DOSE (AMOXICILLIN/CLA
     Dates: start: 20230120, end: 20230127
  3. SOLUPRED [Concomitant]
     Indication: Tooth abscess
     Dates: start: 20230120, end: 20230124
  4. OMEPRAZOLE [Concomitant]
     Active Substance: OMEPRAZOLE
     Indication: Tooth abscess
     Dates: start: 20230120, end: 20230127

REACTIONS (1)
  - Pancreatitis acute [Recovering/Resolving]

NARRATIVE: CASE EVENT DATE: 20230205
